FAERS Safety Report 16528142 (Version 1)
Quarter: 2019Q3

REPORT INFORMATION
  Report Type: Spontaneous
  Country: AU (occurrence: AU)
  Receive Date: 20190704
  Receipt Date: 20190704
  Transmission Date: 20191004
  Serious: Yes (Hospitalization, Other)
  Sender: FDA-Public Use
  Company Number: AU-ASTRAZENECA-2019SE93643

PATIENT
  Sex: Female

DRUGS (14)
  1. ASPIRIN. [Concomitant]
     Active Substance: ASPIRIN
  2. NICORANDIL [Concomitant]
     Active Substance: NICORANDIL
  3. PANTOPRAZOLE [Concomitant]
     Active Substance: PANTOPRAZOLE
  4. TOLVAPTAN [Concomitant]
     Active Substance: TOLVAPTAN
  5. CARVEDILOL. [Concomitant]
     Active Substance: CARVEDILOL
  6. SPIRONOLACTONE. [Concomitant]
     Active Substance: SPIRONOLACTONE
     Dosage: 12.5 MG TWICE A WEEK
  7. ARANESP [Concomitant]
     Active Substance: DARBEPOETIN ALFA
  8. SPIRONOLACTONE. [Concomitant]
     Active Substance: SPIRONOLACTONE
  9. ROSUVASTATIN. [Suspect]
     Active Substance: ROSUVASTATIN
     Dosage: 10.0MG UNKNOWN
     Route: 048
  10. FRUSEMIDE [Concomitant]
     Active Substance: FUROSEMIDE
  11. ISOSORBIDE MONONITRATE. [Concomitant]
     Active Substance: ISOSORBIDE MONONITRATE
     Dosage: 60.0MG UNKNOWN
  12. CLOPIDOGREL [Concomitant]
     Active Substance: CLOPIDOGREL BISULFATE
  13. IVABRADINE [Concomitant]
     Active Substance: IVABRADINE
  14. THIAZIDE [Concomitant]
     Active Substance: UNSPECIFIED INGREDIENT

REACTIONS (13)
  - Cough [Unknown]
  - Cardiorenal syndrome [Unknown]
  - Weight increased [Unknown]
  - Decreased appetite [Unknown]
  - Nocturia [Unknown]
  - Oedema peripheral [Unknown]
  - Fluid overload [Unknown]
  - Hyponatraemia [Unknown]
  - Dyspnoea exertional [Unknown]
  - Pleural effusion [Unknown]
  - Orthopnoea [Unknown]
  - Abdominal distension [Unknown]
  - Lethargy [Unknown]
